FAERS Safety Report 6607160-2 (Version None)
Quarter: 2010Q1

REPORT INFORMATION
  Report Type: 
  Country: None (occurrence: None)
  Receive Date: 20100212
  Receipt Date: 20091027
  Transmission Date: 20100710
  Serious: No
  Sender: FDA-Public Use
  Company Number: 1000009735

PATIENT
  Age: 49 Year
  Sex: Female

DRUGS (11)
  1. SAVELLA [Suspect]
     Indication: FIBROMYALGIA
     Dosage: SEE IMAGE
     Route: 048
     Dates: start: 20091018, end: 20091018
  2. SAVELLA [Suspect]
     Indication: FIBROMYALGIA
     Dosage: SEE IMAGE
     Route: 048
     Dates: start: 20091019, end: 20091020
  3. SAVELLA [Suspect]
     Indication: FIBROMYALGIA
     Dosage: SEE IMAGE
     Route: 048
     Dates: start: 20091021, end: 20091024
  4. SAVELLA [Suspect]
     Indication: FIBROMYALGIA
     Dosage: SEE IMAGE
     Route: 048
     Dates: start: 20091025
  5. DARVOCET-N 100 [Concomitant]
  6. FLONASE [Concomitant]
  7. PROVENTIL [Concomitant]
  8. IMITREX [Concomitant]
  9. PRILOSEC [Concomitant]
  10. TRAZODONE HCL [Concomitant]
  11. ZANAFLEX [Concomitant]

REACTIONS (3)
  - CHILLS [None]
  - HOT FLUSH [None]
  - HYPERHIDROSIS [None]
